FAERS Safety Report 8055656-1 (Version None)
Quarter: 2012Q1

REPORT INFORMATION
  Report Type: 
  Country: None (occurrence: None)
  Receive Date: 20120119
  Receipt Date: 20120117
  Transmission Date: 20120608
  Serious: Yes (Other)
  Sender: FDA-Public Use
  Company Number: GB-PFIZER INC-2011300458

PATIENT
  Age: 52 Year
  Sex: Male
  Weight: 79.3 kg

DRUGS (1)
  1. VARENICLINE TARTRATE [Suspect]
     Indication: SMOKING CESSATION THERAPY
     Dosage: 1 MG, UNK
     Route: 048
     Dates: start: 20110712, end: 20111001

REACTIONS (4)
  - MOOD SWINGS [None]
  - TEARFULNESS [None]
  - DEPRESSION [None]
  - SUICIDAL IDEATION [None]
